FAERS Safety Report 9367166 (Version 1)
Quarter: 2013Q2

REPORT INFORMATION
  Report Type: Spontaneous
  Country: US (occurrence: US)
  Receive Date: 20130625
  Receipt Date: 20130625
  Transmission Date: 20140414
  Serious: No
  Sender: FDA-Public Use
  Company Number: US-ASTELLAS-2012US005571

PATIENT
  Age: 83 Year
  Sex: Male

DRUGS (2)
  1. VESICARE [Suspect]
     Indication: BLADDER SPASM
     Dosage: 10 MG, UNKNOWN/D
     Route: 048
     Dates: start: 20120502, end: 201205
  2. COUMADIN                           /00014802/ [Concomitant]
     Indication: PRODUCT USED FOR UNKNOWN INDICATION
     Dosage: UNK
     Route: 065

REACTIONS (2)
  - Off label use [Unknown]
  - Drug hypersensitivity [Not Recovered/Not Resolved]
